FAERS Safety Report 10270303 (Version 3)
Quarter: 2014Q3

REPORT INFORMATION
  Report Type: Report from Study
  Country: DE (occurrence: DE)
  Receive Date: 20140701
  Receipt Date: 20140729
  Transmission Date: 20150326
  Serious: Yes (Hospitalization, Other)
  Sender: FDA-Public Use
  Company Number: DE-CELGENEUS-062-C5013-14064430

PATIENT
  Age: 82 Year
  Sex: Male

DRUGS (8)
  1. TORASEMID [Concomitant]
     Active Substance: TORSEMIDE
     Indication: HYPERTENSION
     Route: 065
     Dates: start: 20101022
  2. ASPIRIN. [Concomitant]
     Active Substance: ASPIRIN
     Indication: THROMBOSIS PROPHYLAXIS
     Route: 065
     Dates: start: 20091208
  3. EXFORGE [Concomitant]
     Active Substance: AMLODIPINE BESYLATE\VALSARTAN
     Indication: HYPERTENSION
     Route: 065
     Dates: start: 20110324
  4. THALIDOMIDE [Suspect]
     Active Substance: THALIDOMIDE
     Indication: PLASMA CELL MYELOMA
     Route: 048
     Dates: start: 20090501, end: 20110518
  5. MELPHALAN [Suspect]
     Active Substance: MELPHALAN
     Indication: PLASMA CELL MYELOMA
     Route: 048
     Dates: start: 20090501, end: 20110410
  6. PREDNISONE. [Suspect]
     Active Substance: PREDNISONE
     Indication: PLASMA CELL MYELOMA
     Route: 048
     Dates: start: 20090501, end: 20110410
  7. GABAPENTIN. [Concomitant]
     Active Substance: GABAPENTIN
     Indication: PROPHYLAXIS
     Route: 065
     Dates: start: 20100520
  8. SIMVASTATIN. [Concomitant]
     Active Substance: SIMVASTATIN
     Indication: PRODUCT USED FOR UNKNOWN INDICATION
     Route: 065
     Dates: start: 2009

REACTIONS (2)
  - Basal cell carcinoma [Recovered/Resolved]
  - Malignant melanoma [Unknown]

NARRATIVE: CASE EVENT DATE: 20140618
